FAERS Safety Report 4545715-X (Version None)
Quarter: 2005Q1

REPORT INFORMATION
  Report Type: 
  Country: None (occurrence: None)
  Receive Date: 20050104
  Receipt Date: 20050104
  Transmission Date: 20050727
  Serious: Yes (Other)
  Sender: FDA-Public Use
  Company Number: None

PATIENT
  Sex: Male
  Weight: 100 kg

DRUGS (4)
  1. GABAPENTIN [Suspect]
     Indication: ANXIETY
     Dosage: 600MG PO BID; 300MG PO QHS
     Route: 048
     Dates: start: 20020228, end: 20031107
  2. GABAPENTIN [Suspect]
     Indication: DEPRESSION
     Dosage: 600MG PO BID; 300MG PO QHS
     Route: 048
     Dates: start: 20020228, end: 20031107
  3. NEFAZADONE [Concomitant]
  4. TRAZODONE HCL [Concomitant]

REACTIONS (1)
  - TREMOR [None]
